FAERS Safety Report 19567755 (Version 1)
Quarter: 2021Q3

REPORT INFORMATION
  Report Type: Spontaneous
  Country: JP (occurrence: JP)
  Receive Date: 20210716
  Receipt Date: 20210716
  Transmission Date: 20211014
  Serious: Yes (Death, Other)
  Sender: FDA-Public Use
  Company Number: JP-SLATE RUN PHARMACEUTICALS-21JP000575

PATIENT

DRUGS (8)
  1. MYCOPHENOLATE MOFETIL. [Concomitant]
     Active Substance: MYCOPHENOLATE MOFETIL
     Indication: PROPHYLAXIS AGAINST GRAFT VERSUS HOST DISEASE
     Dosage: 1500 MILLIGRAM, QD
  2. METHYLPREDNISOLONE. [Suspect]
     Active Substance: METHYLPREDNISOLONE
     Indication: THROMBOTIC MICROANGIOPATHY
     Dosage: 20 MILLIGRAM, QD
  3. METHYLPREDNISOLONE. [Suspect]
     Active Substance: METHYLPREDNISOLONE
     Indication: ENGRAFTMENT SYNDROME
     Dosage: PULSE
  4. VALACICLOVIR [Concomitant]
     Active Substance: VALACYCLOVIR HYDROCHLORIDE
     Indication: PROPHYLAXIS
  5. GANCICLOVIR USP [Suspect]
     Active Substance: GANCICLOVIR
     Indication: CYTOMEGALOVIRUS TEST POSITIVE
     Dosage: UNK
  6. TACROLIMUS. [Suspect]
     Active Substance: TACROLIMUS
     Indication: PROPHYLAXIS AGAINST GRAFT VERSUS HOST DISEASE
  7. OTHER THERAPEUTIC PRODUCTS [Concomitant]
     Active Substance: UNSPECIFIED INGREDIENT
     Indication: PROPHYLAXIS AGAINST GRAFT VERSUS HOST DISEASE
     Dosage: 1 MILLIGRAM PER KILOGRAM
     Route: 042
  8. FOSCARNET [Suspect]
     Active Substance: FOSCARNET
     Indication: ENCEPHALITIS CYTOMEGALOVIRUS

REACTIONS (19)
  - Multiple organ dysfunction syndrome [Fatal]
  - Engraftment syndrome [Unknown]
  - Post transplant distal limb syndrome [Recovering/Resolving]
  - Drug ineffective [Unknown]
  - Cognitive disorder [Unknown]
  - Magnetic resonance imaging head abnormal [Unknown]
  - Thrombotic microangiopathy [Unknown]
  - Encephalitis cytomegalovirus [Unknown]
  - Blood lactate dehydrogenase increased [Unknown]
  - Memory impairment [Unknown]
  - Pyrexia [Unknown]
  - Seizure [Unknown]
  - Renal impairment [Unknown]
  - Adenoviral hepatitis [Fatal]
  - Acute hepatic failure [Fatal]
  - Pain in extremity [Recovering/Resolving]
  - Loss of consciousness [Unknown]
  - Off label use [Unknown]
  - Red blood cell analysis abnormal [Unknown]
